FAERS Safety Report 4282342-6 (Version None)
Quarter: 2004Q1

REPORT INFORMATION
  Report Type: 
  Country: None (occurrence: None)
  Receive Date: 20040130
  Receipt Date: 20031126
  Transmission Date: 20041129
  Serious: Yes (Life-Threatening, Other)
  Sender: FDA-Public Use
  Company Number: WAES 0312USA00046

PATIENT
  Age: 60 Year
  Sex: Male
  Weight: 110 kg

DRUGS (12)
  1. [THERAPY UNSPECIFIED] [Concomitant]
  2. FELODIPINE [Concomitant]
     Indication: BLOOD PRESSURE
  3. FUROSEMIDE [Concomitant]
  4. NPH ILETIN II [Concomitant]
     Route: 058
  5. NPH ILETIN II [Concomitant]
     Route: 058
  6. IRBESARTAN [Concomitant]
     Indication: BLOOD PRESSURE
     Route: 048
  7. LEVOTHYROXINE SODIUM [Concomitant]
     Route: 048
  8. ZOCOR [Suspect]
     Indication: HYPERCHOLESTEROLAEMIA
     Route: 048
     Dates: start: 20030701, end: 20031119
  9. ZOCOR [Suspect]
     Route: 048
     Dates: start: 20031120, end: 20031125
  10. ZOCOR [Suspect]
     Indication: HYPERLIPIDAEMIA
     Route: 048
     Dates: start: 20030701, end: 20031119
  11. ZOCOR [Suspect]
     Route: 048
     Dates: start: 20031120, end: 20031125
  12. TERAZOSIN HYDROCHLORIDE [Concomitant]
     Route: 048

REACTIONS (11)
  - BLOOD ALBUMIN DECREASED [None]
  - BLOOD CREATININE INCREASED [None]
  - BLOOD GLUCOSE INCREASED [None]
  - CHEST X-RAY ABNORMAL [None]
  - HAEMOLYTIC ANAEMIA [None]
  - INSOMNIA [None]
  - LOW DENSITY LIPOPROTEIN INCREASED [None]
  - OEDEMA PERIPHERAL [None]
  - PITTING OEDEMA [None]
  - RESTLESSNESS [None]
  - WEIGHT INCREASED [None]
